FAERS Safety Report 16767398 (Version 1)
Quarter: 2019Q3

REPORT INFORMATION
  Report Type: Spontaneous
  Country: US (occurrence: US)
  Receive Date: 20190903
  Receipt Date: 20190903
  Transmission Date: 20191005
  Serious: No
  Sender: FDA-Public Use
  Company Number: US-PFIZER INC-2019379971

PATIENT
  Sex: Female

DRUGS (2)
  1. TALWIN [Suspect]
     Active Substance: PENTAZOCINE LACTATE
     Dosage: UNK
  2. DDT [Suspect]
     Active Substance: CLOFENOTANE
     Dosage: UNK

REACTIONS (2)
  - Insomnia [Recovered/Resolved]
  - Drug hypersensitivity [Recovered/Resolved]
